FAERS Safety Report 15904382 (Version 7)
Quarter: 2020Q2

REPORT INFORMATION
  Report Type: Spontaneous
  Country: CA (occurrence: CA)
  Receive Date: 20190204
  Receipt Date: 20200513
  Transmission Date: 20200713
  Serious: Yes (Other)
  Sender: FDA-Public Use
  Company Number: CA-CELLTRION INC.-2018CA020162

PATIENT

DRUGS (20)
  1. CRESTOR [Concomitant]
     Active Substance: ROSUVASTATIN CALCIUM
     Dosage: 40 MG, 1X/DAY
     Route: 048
     Dates: start: 2010
  2. ATENOLOL. [Concomitant]
     Active Substance: ATENOLOL
     Dosage: 50 MG, UNK
     Route: 048
     Dates: start: 1997
  3. FOLIC ACID. [Concomitant]
     Active Substance: FOLIC ACID
     Dosage: 5 MG, SIX TIMES WEEKLY
     Route: 048
  4. INFLECTRA [Suspect]
     Active Substance: INFLIXIMAB-DYYB
     Dosage: 430 MG, EVERY 8 WEEKS
     Route: 042
     Dates: start: 20190328
  5. INFLECTRA [Suspect]
     Active Substance: INFLIXIMAB-DYYB
     Dosage: 430 MG, EVERY 8 WEEKS
     Route: 042
     Dates: start: 20190625
  6. LEUCOVORIN [FOLINIC ACID] [Concomitant]
     Active Substance: LEUCOVORIN
     Dosage: UNK, (UNKNOWN DOSE, 2 DAYS EVERY WEEK)
     Route: 065
  7. INFLECTRA [Suspect]
     Active Substance: INFLIXIMAB-DYYB
     Dosage: 420 MG, EVERY 8 WEEKS
     Route: 042
     Dates: start: 20180501
  8. INFLECTRA [Suspect]
     Active Substance: INFLIXIMAB-DYYB
     Dosage: UNK
     Route: 042
     Dates: start: 20180827
  9. ASA [Concomitant]
     Active Substance: ASPIRIN
     Dosage: 81 MG, 1X/DAY
     Route: 048
     Dates: start: 1997
  10. INFLECTRA [Suspect]
     Active Substance: INFLIXIMAB-DYYB
     Dosage: 420 MG, (OR 400 MG)/ Q 0, 2, 6 WEEKS, THEN EVERY 8
     Route: 042
     Dates: start: 20171129, end: 20180501
  11. METHOTREXATE SODIUM. [Concomitant]
     Active Substance: METHOTREXATE SODIUM
     Indication: RHEUMATOID ARTHRITIS
     Dosage: 10 DF, TABLETS WEEKLY
     Route: 048
     Dates: start: 2010
  12. JARDIANCE [Concomitant]
     Active Substance: EMPAGLIFLOZIN
     Dosage: 25 MG, 1X/DAY
     Route: 065
     Dates: start: 2017
  13. INFLECTRA [Suspect]
     Active Substance: INFLIXIMAB-DYYB
     Indication: RHEUMATOID ARTHRITIS
     Dosage: 420 MG, EVERY 8 WEEKS
     Route: 042
     Dates: start: 20171129, end: 20180501
  14. GABAPENTIN. [Concomitant]
     Active Substance: GABAPENTIN
     Dosage: 200 MG, 1X/DAY BEFORE SLEEP
     Route: 065
     Dates: start: 2013
  15. DIOVAN [Concomitant]
     Active Substance: VALSARTAN
     Dosage: 160 MG, 1X/DAY
     Route: 048
     Dates: start: 2007
  16. INFLECTRA [Suspect]
     Active Substance: INFLIXIMAB-DYYB
     Dosage: 600 MG, EVERY 8 WEEKS
     Route: 042
     Dates: start: 20180625, end: 20190121
  17. INFLECTRA [Suspect]
     Active Substance: INFLIXIMAB-DYYB
     Dosage: 500MG, EVERY 8 WEEKS
     Route: 042
     Dates: start: 20190121
  18. LEFLUNOMIDE. [Concomitant]
     Active Substance: LEFLUNOMIDE
     Dosage: 20 MG, UNK
     Route: 048
     Dates: start: 2011
  19. METFORMIN HYDROCHLORIDE. [Concomitant]
     Active Substance: METFORMIN HYDROCHLORIDE
     Dosage: 500 MG, UNK
     Route: 048
     Dates: start: 2002
  20. INSULIN [Concomitant]
     Active Substance: INSULIN NOS
     Dosage: UNK, (SLIDING SCALE)
     Route: 065
     Dates: start: 2011

REACTIONS (8)
  - Incorrect dose administered [Unknown]
  - Blood pressure fluctuation [Unknown]
  - Pyrexia [Unknown]
  - Influenza like illness [Unknown]
  - Inappropriate schedule of product administration [Unknown]
  - Cough [Unknown]
  - Heart rate irregular [Unknown]
  - Cardiac failure [Unknown]

NARRATIVE: CASE EVENT DATE: 20180625
